FAERS Safety Report 12062033 (Version 1)
Quarter: 2016Q1

REPORT INFORMATION
  Report Type: Spontaneous
  Country: US (occurrence: US)
  Receive Date: 20160210
  Receipt Date: 20160210
  Transmission Date: 20160526
  Serious: No
  Sender: FDA-Public Use
  Company Number: US-ALLERGAN-1300085US

PATIENT
  Age: 46 Year
  Sex: Female

DRUGS (4)
  1. MVI [Concomitant]
     Active Substance: VITAMINS
     Indication: SUPPLEMENTATION THERAPY
     Dosage: UNK
     Route: 048
  2. BOTOX COSMETIC [Suspect]
     Active Substance: ONABOTULINUMTOXINA
     Indication: SKIN WRINKLING
     Dosage: 35 UNITS, SINGLE
     Route: 030
     Dates: start: 201212, end: 201212
  3. DIOVAN                             /01319601/ [Concomitant]
     Indication: HYPERTENSION
     Dosage: UNK
     Route: 048
  4. BOTOX COSMETIC [Suspect]
     Active Substance: ONABOTULINUMTOXINA
     Dosage: 25 UNITS, SINGLE
     Route: 030
     Dates: start: 201211, end: 201211

REACTIONS (2)
  - Off label use [Unknown]
  - Drug ineffective [Unknown]
